FAERS Safety Report 16788886 (Version 1)
Quarter: 2019Q3

REPORT INFORMATION
  Report Type: Spontaneous
  Country: FR (occurrence: FR)
  Receive Date: 20190910
  Receipt Date: 20190910
  Transmission Date: 20191005
  Serious: Yes (Hospitalization)
  Sender: FDA-Public Use
  Company Number: FR-TEVA-2019-FR-1103578

PATIENT
  Age: 65 Year
  Sex: Female
  Weight: 58 kg

DRUGS (14)
  1. SIMVASTATIN. [Concomitant]
     Active Substance: SIMVASTATIN
     Indication: BREAST CANCER RECURRENT
     Dosage: 1 DF,QW
     Route: 042
     Dates: start: 201202
  2. ANAFRANIL [Concomitant]
     Active Substance: CLOMIPRAMINE HYDROCHLORIDE
     Route: 030
     Dates: start: 20120621, end: 20120621
  3. AVASTIN [Concomitant]
     Active Substance: BEVACIZUMAB
     Indication: BREAST CANCER RECURRENT
     Dosage: 1 DF, QW
     Route: 042
     Dates: start: 201202
  4. ESOMEPRAZOLE. [Suspect]
     Active Substance: ESOMEPRAZOLE MAGNESIUM
     Indication: PRODUCT USED FOR UNKNOWN INDICATION
     Dosage: UNK, 1 DOSAGE FORMS
     Route: 048
  5. ANAFRANIL [Concomitant]
     Active Substance: CLOMIPRAMINE HYDROCHLORIDE
     Indication: MAJOR DEPRESSION
     Dosage: 150 MG,QD  PROGRESSIVE INTRODUCTION WITH MAINTENANCE DOSE ON 22/06/2012 AT 150 MG / DAY THEN DECREAS
     Route: 048
     Dates: start: 20120622, end: 20120704
  6. TAXOL [Concomitant]
     Active Substance: PACLITAXEL
     Indication: BREAST CANCER RECURRENT
     Dosage: 1 DOSAGE FORMS
     Route: 042
     Dates: start: 201202
  7. GUTRON 2,5 MG, COMPRIME [Concomitant]
     Active Substance: MIDODRINE
     Indication: ORTHOSTATIC HYPOTENSION
     Dosage: FROM 22/06/2012 TO 03/07/2012: 12 TABLETS /DAY THEN FROM 03/07/2012 6 TABLETS /DAY
     Route: 048
     Dates: start: 20120622, end: 20120716
  8. ANAFRANIL [Concomitant]
     Active Substance: CLOMIPRAMINE HYDROCHLORIDE
     Route: 030
     Dates: start: 20120620, end: 20120620
  9. ONDANSETRON [Concomitant]
     Active Substance: ONDANSETRON
     Indication: VOMITING
     Dosage: 1 DF,QW
     Route: 048
     Dates: start: 201202
  10. CORTICOSTEROIDS [Concomitant]
     Active Substance: CORTICOSTEROID NOS
     Dosage: 1 DOSAGE FORMS
     Route: 048
     Dates: start: 201202
  11. ANAFRANIL [Concomitant]
     Active Substance: CLOMIPRAMINE HYDROCHLORIDE
     Route: 048
     Dates: start: 20120705
  12. ZYPREXA [Concomitant]
     Active Substance: OLANZAPINE
     Indication: MAJOR DEPRESSION
     Dosage: 1 DOSAGE FORMS
     Route: 048
     Dates: start: 20120628, end: 20120716
  13. ZOPHREN [Concomitant]
     Active Substance: ONDANSETRON
     Indication: VOMITING
     Dosage: 1 DOSAGE FORMS
     Route: 048
     Dates: start: 201202
  14. LARGACTIL [Suspect]
     Active Substance: CHLORPROMAZINE
     Indication: MAJOR DEPRESSION
     Dosage: 200 DROPS DAILY WITH 50 DROPS IF NEEDED
     Route: 048
     Dates: start: 20120620, end: 20120628

REACTIONS (1)
  - Orthostatic hypotension [Recovered/Resolved]

NARRATIVE: CASE EVENT DATE: 20120622
